FAERS Safety Report 15314840 (Version 2)
Quarter: 2018Q3

REPORT INFORMATION
  Report Type: Spontaneous
  Country: US (occurrence: US)
  Receive Date: 20180824
  Receipt Date: 20180911
  Transmission Date: 20181010
  Serious: Yes (Hospitalization)
  Sender: FDA-Public Use
  Company Number: US-VIFOR (INTERNATIONAL) INC.-VIT-2018-08373

PATIENT
  Sex: Female

DRUGS (2)
  1. VELPHORO [Suspect]
     Active Substance: FERRIC OXYHYDROXIDE
     Indication: BLOOD PHOSPHORUS INCREASED
     Route: 048
     Dates: start: 201806
  2. VELPHORO [Suspect]
     Active Substance: FERRIC OXYHYDROXIDE
     Indication: END STAGE RENAL DISEASE
     Route: 048
     Dates: start: 20160301, end: 20170630

REACTIONS (1)
  - Parathyroidectomy [Unknown]

NARRATIVE: CASE EVENT DATE: 201706
